FAERS Safety Report 16928645 (Version 1)
Quarter: 2019Q4

REPORT INFORMATION
  Report Type: Spontaneous
  Country: NL (occurrence: NL)
  Receive Date: 20191017
  Receipt Date: 20191017
  Transmission Date: 20200122
  Serious: Yes (Death, Other)
  Sender: FDA-Public Use
  Company Number: NL-TEVA-2005R081876

PATIENT
  Sex: Female
  Weight: .78 kg

DRUGS (5)
  1. NIFEDIPINE. [Suspect]
     Active Substance: NIFEDIPINE
     Indication: TOCOLYSIS
     Route: 064
  2. CORTICOSTEROIDS [Concomitant]
     Active Substance: CORTICOSTEROID NOS
     Indication: IMMATURE RESPIRATORY SYSTEM
     Route: 064
  3. NIFEDIPINE. [Suspect]
     Active Substance: NIFEDIPINE
     Route: 064
  4. INDOMETHACIN. [Concomitant]
     Active Substance: INDOMETHACIN
     Indication: TOCOLYSIS
     Route: 064
  5. ATOSIBAN [Concomitant]
     Active Substance: ATOSIBAN
     Indication: TOCOLYSIS
     Route: 064

REACTIONS (2)
  - Bradycardia foetal [Fatal]
  - Foetal exposure during pregnancy [Unknown]
